FAERS Safety Report 7498323-5 (Version None)
Quarter: 2011Q2

REPORT INFORMATION
  Report Type: 
  Country: None (occurrence: None)
  Receive Date: 20110524
  Receipt Date: 20101230
  Transmission Date: 20111010
  Serious: Yes (Hospitalization, Other)
  Sender: FDA-Public Use
  Company Number: US-BAYER-201024722NA

PATIENT
  Age: 20 Year
  Sex: Female
  Weight: 63.636 kg

DRUGS (33)
  1. YASMIN [Suspect]
     Indication: ORAL CONTRACEPTION
     Route: 048
     Dates: start: 20051101, end: 20090101
  2. TRIAZOLAM [Concomitant]
     Dates: start: 20051001
  3. ORPHENADRINE CITRATE [Concomitant]
     Dates: start: 20070501
  4. NASONEX [Concomitant]
     Dates: start: 20070401
  5. AZITHROMYCIN [Concomitant]
     Dates: start: 20061001
  6. CLINDAMYCIN [Concomitant]
     Dates: start: 20070401
  7. DROSPIRENONE AND ETHINYL ESTRADIOL [Suspect]
     Indication: ORAL CONTRACEPTION
     Route: 048
     Dates: start: 20080521, end: 20081201
  8. METRONIDAZOLE [Concomitant]
     Dates: start: 20080801
  9. ECONAZOLE NITRATE [Concomitant]
     Dates: start: 20070801
  10. METHYLPREDNISOLONE [Concomitant]
     Dates: start: 20051001
  11. IBUPROFEN [Concomitant]
  12. ACETAMINOPHEN [Concomitant]
  13. HYDROCODONE [Concomitant]
     Dates: start: 20051001
  14. CLINDESSE [Concomitant]
     Route: 067
     Dates: start: 20070801
  15. TRETINOIN [Concomitant]
     Dates: start: 20070401
  16. PROMETHAZINE [Concomitant]
     Dates: start: 20051001
  17. DIFFERIN [Concomitant]
     Dates: start: 20080701
  18. DOXYCYCLINE HYCLATE [Concomitant]
     Dates: start: 20070801
  19. ZITHROMAX [Concomitant]
     Dates: start: 20070901
  20. TRIAMCINOLONE [Concomitant]
     Dates: start: 20070401
  21. LEVAQUIN [Concomitant]
     Dates: start: 20070501
  22. PROPOXYPHENE NAPSYLATE [Concomitant]
     Dates: start: 20070701
  23. AMOXICILLIN [Concomitant]
     Dates: start: 20051001, end: 20070401
  24. ZITHROMAX [Concomitant]
  25. METRONIDAZOLE [Concomitant]
     Dates: start: 20070601
  26. TRINESSA [Concomitant]
     Dates: start: 20050401
  27. COTRIM [Concomitant]
     Dates: start: 20090401
  28. METRONIDAZOLE [Concomitant]
     Dates: start: 20081201
  29. TRAMADOL HCL [Concomitant]
     Dates: start: 20070501
  30. CEPHALEXIN [Concomitant]
     Dates: start: 20071001
  31. ALLEGRA [Concomitant]
     Dates: start: 20070401
  32. METROGEL [Concomitant]
     Dates: start: 20080901
  33. SULFONAMIDES AND TRIMETHOPRIM [Concomitant]
     Dates: start: 20071201

REACTIONS (3)
  - GALLBLADDER DISORDER [None]
  - CHOLECYSTITIS [None]
  - PAIN [None]
